FAERS Safety Report 25601762 (Version 2)
Quarter: 2025Q3

REPORT INFORMATION
  Report Type: Spontaneous
  Country: US (occurrence: US)
  Receive Date: 20250724
  Receipt Date: 20250728
  Transmission Date: 20251020
  Serious: Yes (Life-Threatening, Other)
  Sender: PFIZER
  Company Number: US-MLMSERVICE-20250717-PI576806-00101-4

PATIENT
  Age: 12 Month
  Sex: Male
  Weight: 0.47 kg

DRUGS (5)
  1. VINCRISTINE SULFATE [Suspect]
     Active Substance: VINCRISTINE SULFATE
     Indication: Hepatoblastoma
  2. DOXORUBICIN HYDROCHLORIDE [Suspect]
     Active Substance: DOXORUBICIN HYDROCHLORIDE
     Indication: Hepatoblastoma
  3. CISPLATIN [Suspect]
     Active Substance: CISPLATIN
     Indication: Hepatoblastoma
  4. FLUOROURACIL [Suspect]
     Active Substance: FLUOROURACIL
     Indication: Hepatoblastoma
  5. OXYGEN [Concomitant]
     Active Substance: OXYGEN
     Indication: Chronic respiratory disease

REACTIONS (6)
  - Septic shock [Recovered/Resolved]
  - Neutropenia [Recovered/Resolved]
  - Cardiac arrest [Recovered/Resolved]
  - Respiratory failure [Recovered/Resolved]
  - Off label use [Unknown]
  - Drug ineffective for unapproved indication [Unknown]
